FAERS Safety Report 13550886 (Version 1)
Quarter: 2017Q2

REPORT INFORMATION
  Report Type: Spontaneous
  Country: DE (occurrence: DE)
  Receive Date: 20170516
  Receipt Date: 20170516
  Transmission Date: 20170830
  Serious: Yes (Other)
  Sender: FDA-Public Use
  Company Number: DE-BAYER-2017-091417

PATIENT
  Age: 26 Year
  Sex: Female

DRUGS (1)
  1. JAYDESS [Suspect]
     Active Substance: LEVONORGESTREL
     Indication: CONTRACEPTION
     Dosage: 14 MCG/24HR, CONT
     Route: 015
     Dates: start: 2015, end: 201610

REACTIONS (20)
  - Cardiac disorder [Recovering/Resolving]
  - Alopecia [Recovered/Resolved]
  - Onychoclasis [Recovering/Resolving]
  - Procedural pain [Recovering/Resolving]
  - Abdominal pain [Recovered/Resolved]
  - Depression [Recovered/Resolved]
  - Burnout syndrome [Recovering/Resolving]
  - Immunodeficiency [Not Recovered/Not Resolved]
  - Pelvic pain [Recovered/Resolved]
  - Feeling abnormal [Recovering/Resolving]
  - Partner stress [Recovering/Resolving]
  - Fatigue [Recovering/Resolving]
  - Gastrointestinal sounds abnormal [Recovered/Resolved]
  - Anger [Recovering/Resolving]
  - Acne [Recovered/Resolved]
  - Crying [Recovered/Resolved]
  - Dyspnoea [Recovering/Resolving]
  - Stress [Recovering/Resolving]
  - Loss of libido [Recovering/Resolving]
  - Aggression [Recovering/Resolving]

NARRATIVE: CASE EVENT DATE: 201507
